FAERS Safety Report 10055162 (Version 1)
Quarter: 2014Q2

REPORT INFORMATION
  Report Type: Report from Study
  Country: US (occurrence: US)
  Receive Date: 20140402
  Receipt Date: 20140402
  Transmission Date: 20141212
  Serious: Yes (Other)
  Sender: FDA-Public Use
  Company Number: PHEH2014US006256

PATIENT
  Sex: Female

DRUGS (6)
  1. GILENYA [Suspect]
     Indication: MULTIPLE SCLEROSIS
     Dosage: 0.5 MG, DAILY
     Route: 048
     Dates: start: 201403
  2. MULTI-VIT [Concomitant]
  3. VIT D [Concomitant]
  4. BACLOFEN [Concomitant]
  5. CYCLOBENZAPRINE HCL [Concomitant]
  6. NAPROSYN [Concomitant]

REACTIONS (2)
  - Partial seizures [Unknown]
  - Tremor [Unknown]
